FAERS Safety Report 15665062 (Version 1)
Quarter: 2018Q4

REPORT INFORMATION
  Report Type: Spontaneous
  Country: BR (occurrence: BR)
  Receive Date: 20181128
  Receipt Date: 20181128
  Transmission Date: 20190205
  Serious: Yes (Other)
  Sender: FDA-Public Use
  Company Number: PHHY2018BR024687

PATIENT
  Sex: Female
  Weight: 65 kg

DRUGS (2)
  1. RITALIN LA [Suspect]
     Active Substance: METHYLPHENIDATE HYDROCHLORIDE
     Indication: DYSLEXIA
     Dosage: 1 DF, QD
     Route: 048
     Dates: end: 201710
  2. RITALIN LA [Suspect]
     Active Substance: METHYLPHENIDATE HYDROCHLORIDE
     Indication: PERSONALITY CHANGE
     Dosage: 1 DF, QD
     Route: 048
     Dates: start: 201801

REACTIONS (1)
  - Drug dependence [Recovered/Resolved]
